FAERS Safety Report 7304148-3 (Version None)
Quarter: 2011Q1

REPORT INFORMATION
  Report Type: 
  Country: None (occurrence: None)
  Receive Date: 20110221
  Receipt Date: 20091119
  Transmission Date: 20110831
  Serious: Yes (Other)
  Sender: FDA-Public Use
  Company Number: US-BAYER-2011-005886

PATIENT
  Sex: Male

DRUGS (1)
  1. TRASYLOL [Suspect]
     Indication: PRODUCT USED FOR UNKNOWN INDICATION
     Dosage: UNK
     Dates: start: 20030327

REACTIONS (8)
  - UNEVALUABLE EVENT [None]
  - EMOTIONAL DISTRESS [None]
  - INJURY [None]
  - CEREBROVASCULAR ACCIDENT [None]
  - FEAR [None]
  - STRESS [None]
  - ANXIETY [None]
  - PAIN [None]
